FAERS Safety Report 9646595 (Version 1)
Quarter: 2013Q4

REPORT INFORMATION
  Report Type: Spontaneous
  Country: GB (occurrence: GB)
  Receive Date: 20131026
  Receipt Date: 20131026
  Transmission Date: 20140711
  Serious: Yes (Other)
  Sender: FDA-Public Use
  Company Number: GB-AMGEN-GBRSP2013074628

PATIENT
  Age: 83 Year
  Sex: Female
  Weight: 59 kg

DRUGS (10)
  1. PROLIA [Suspect]
     Indication: PRODUCT USED FOR UNKNOWN INDICATION
     Dosage: 60 MG, UNK
     Route: 058
     Dates: start: 20130913, end: 20130913
  2. ASPIRIN [Concomitant]
     Dosage: 75 MG, QD
     Route: 048
     Dates: start: 19990203
  3. CEFALEXIN [Concomitant]
     Dosage: 250 MG, QD
     Route: 048
     Dates: start: 20031230
  4. FOLIC ACID [Concomitant]
     Dosage: 5 MG, 3 TIMES/WK
     Route: 048
     Dates: start: 20001023
  5. GLYCERYL TRINITRATE [Concomitant]
     Dosage: 1 DF, AS NECESSARY
     Route: 060
     Dates: start: 20100910
  6. LISINOPRIL [Concomitant]
     Dosage: 40 MG, QD
     Route: 048
     Dates: start: 20020521
  7. METHOTREXATE [Concomitant]
     Dosage: 10 MG, 4 TIMES/WK
     Route: 048
     Dates: start: 20010228
  8. OPTIVE [Concomitant]
     Dosage: UNK
     Dates: start: 20100615
  9. PRAVASTATIN [Concomitant]
     Dosage: 40 MG, QD
     Route: 048
     Dates: start: 20100716
  10. TILDIEM [Concomitant]
     Dosage: 300 MG, QD
     Route: 048
     Dates: start: 20000215

REACTIONS (3)
  - Rash erythematous [Not Recovered/Not Resolved]
  - Rash pruritic [Not Recovered/Not Resolved]
  - Cellulitis [Not Recovered/Not Resolved]
